FAERS Safety Report 24332681 (Version 1)
Quarter: 2024Q3

REPORT INFORMATION
  Report Type: Spontaneous
  Country: TR (occurrence: TR)
  Receive Date: 20240918
  Receipt Date: 20240918
  Transmission Date: 20241017
  Serious: Yes (Death)
  Sender: ROCHE
  Company Number: TR-ROCHE-10000083724

PATIENT
  Age: 42 Year
  Sex: Male

DRUGS (6)
  1. RITUXIMAB [Suspect]
     Active Substance: RITUXIMAB
     Indication: Central nervous system lymphoma
     Route: 065
     Dates: start: 202301
  2. LENALIDOMIDE [Suspect]
     Active Substance: LENALIDOMIDE
     Indication: Central nervous system lymphoma
     Route: 065
  3. CYTARABINE [Suspect]
     Active Substance: CYTARABINE
     Indication: Central nervous system lymphoma
     Route: 065
  4. TEMOZOLOMIDE [Suspect]
     Active Substance: TEMOZOLOMIDE
     Indication: Central nervous system lymphoma
     Route: 065
     Dates: start: 202301
  5. METHOTREXATE [Suspect]
     Active Substance: METHOTREXATE
     Indication: Central nervous system lymphoma
     Route: 065
     Dates: start: 202301
  6. METHOTREXATE [Suspect]
     Active Substance: METHOTREXATE
     Route: 065
     Dates: start: 2020

REACTIONS (2)
  - Disease progression [Fatal]
  - Off label use [Fatal]
